FAERS Safety Report 19030619 (Version 3)
Quarter: 2022Q2

REPORT INFORMATION
  Report Type: Spontaneous
  Country: CA (occurrence: CA)
  Receive Date: 20210319
  Receipt Date: 20220512
  Transmission Date: 20220721
  Serious: Yes (Hospitalization, Other)
  Sender: FDA-Public Use
  Company Number: CA-MLMSERVICE-20210305-2764820-1

PATIENT
  Age: 38 Year
  Sex: Female
  Weight: 60 kg

DRUGS (3)
  1. PACLITAXEL [Suspect]
     Active Substance: PACLITAXEL
     Indication: Breast cancer
     Dosage: ONCE WEEKLY X12 WEEKS
     Route: 041
     Dates: start: 20190405, end: 20190830
  2. DOXORUBICIN [Suspect]
     Active Substance: DOXORUBICIN
     Indication: Breast cancer
     Dosage: ADJUVANT PUSH EVERY 21 DAYS
     Route: 042
     Dates: start: 20190405, end: 20190830
  3. CYCLOPHOSPHAMIDE [Suspect]
     Active Substance: CYCLOPHOSPHAMIDE
     Indication: Breast cancer
     Dosage: EVERY 21 DAYS
     Route: 041
     Dates: start: 20190405, end: 20190830

REACTIONS (6)
  - Hypertransaminasaemia [Recovered/Resolved]
  - Hypotension [Recovered/Resolved]
  - Haemophagocytic lymphohistiocytosis [Recovered/Resolved]
  - Hyperferritinaemia [Recovered/Resolved]
  - Cytopenia [Recovered/Resolved]
  - Lymphadenitis [Recovered/Resolved]

NARRATIVE: CASE EVENT DATE: 20200807
